FAERS Safety Report 5240535-5 (Version None)
Quarter: 2007Q1

REPORT INFORMATION
  Report Type: 
  Country: None (occurrence: None)
  Receive Date: 20061208
  Receipt Date: 20060407
  Transmission Date: 20070707
  Serious: Yes (Other)
  Sender: FDA-Public Use
  Company Number: 2006UW06286

PATIENT
  Age: 53 Year
  Sex: Female

DRUGS (3)
  1. CRESTOR [Suspect]
     Indication: HYPERCHOLESTEROLAEMIA
     Dosage: 10 MG QD PO
     Route: 048
     Dates: start: 20060406
  2. CLARITIN [Concomitant]
  3. ZANTAC [Concomitant]

REACTIONS (1)
  - MUSCULOSKELETAL DISCOMFORT [None]
